FAERS Safety Report 18192757 (Version 1)
Quarter: 2020Q3

REPORT INFORMATION
  Report Type: Spontaneous
  Country: DK (occurrence: DK)
  Receive Date: 20200825
  Receipt Date: 20200825
  Transmission Date: 20201103
  Serious: Yes (Life-Threatening, Hospitalization, Other)
  Sender: FDA-Public Use
  Company Number: DK-GLAXOSMITHKLINE-DK2020169870

PATIENT
  Age: 29 Year
  Sex: Female

DRUGS (1)
  1. ORLISTAT. [Suspect]
     Active Substance: ORLISTAT
     Indication: OVERWEIGHT
     Dosage: 60 MG (DOSAGE: UNKNOWN, STRENGTH: 60 MG)
     Route: 048
     Dates: start: 20191101, end: 20191201

REACTIONS (2)
  - Acute abdomen [Unknown]
  - Sepsis [Recovering/Resolving]

NARRATIVE: CASE EVENT DATE: 20200731
